FAERS Safety Report 8899530 (Version 1)
Quarter: 2012Q4

REPORT INFORMATION
  Report Type: 
  Country: US (occurrence: US)
  Receive Date: 20121108
  Receipt Date: 20121108
  Transmission Date: 20130627
  Serious: No
  Sender: FDA-Public Use
  Company Number: US-AMGEN-USASP2012029011

PATIENT
  Age: 47 Year
  Sex: Female
  Weight: 76.64 kg

DRUGS (6)
  1. ENBREL [Suspect]
     Indication: RHEUMATOID ARTHRITIS
     Dosage: 50 mg, qwk
     Route: 058
  2. CYMBALTA [Concomitant]
     Dosage: 30 mg, UNK
  3. AMBIEN [Concomitant]
     Dosage: 5 mg, UNK
  4. FISH OIL [Concomitant]
     Dosage: UNK
  5. VITAMIN E                          /00110501/ [Concomitant]
     Dosage: 3000 IU, UNK
  6. VITAMIN B12                        /00056201/ [Concomitant]
     Dosage: 1000 mug, UNK

REACTIONS (3)
  - Weight increased [Unknown]
  - Oedema peripheral [Unknown]
  - Dyspnoea [Recovered/Resolved]
